FAERS Safety Report 16728831 (Version 2)
Quarter: 2019Q3

REPORT INFORMATION
  Report Type: Spontaneous
  Country: IT (occurrence: IT)
  Receive Date: 20190822
  Receipt Date: 20190920
  Transmission Date: 20191005
  Serious: Yes (Other)
  Sender: FDA-Public Use
  Company Number: IT-ACCORD-152126

PATIENT
  Age: 62 Year
  Sex: Male
  Weight: 67 kg

DRUGS (17)
  1. ALDACTONE [Concomitant]
     Active Substance: SPIRONOLACTONE
  2. FLUOROURACIL. [Suspect]
     Active Substance: FLUOROURACIL
     Indication: ADENOCARCINOMA PANCREAS
     Route: 042
     Dates: start: 20181228, end: 20190225
  3. TAMSULOSIN [Concomitant]
     Active Substance: TAMSULOSIN
  4. LASIX [Concomitant]
     Active Substance: FUROSEMIDE
  5. IVABRADINE/IVABRADINE HYDROCHLORIDE [Concomitant]
  6. DEBRIDAT [Concomitant]
     Active Substance: TRIMEBUTINE MALEATE
  7. LEVOLEUCOVORIN. [Concomitant]
     Active Substance: LEVOLEUCOVORIN
     Indication: ADENOCARCINOMA PANCREAS
     Dosage: ALSO RECEIVED 540 MG
     Route: 042
     Dates: start: 20190325, end: 20190617
  8. PLAVIX [Concomitant]
     Active Substance: CLOPIDOGREL BISULFATE
  9. CARDIOASPIRIN [Concomitant]
     Active Substance: ASPIRIN
  10. CARVEDILOL/CARVEDILOL HYDROCHLODRIDE [Concomitant]
  11. OXALIPLATIN. [Suspect]
     Active Substance: OXALIPLATIN
     Indication: ADENOCARCINOMA PANCREAS
     Dosage: RECEIVED TILL 17-JUN-2019
     Route: 042
     Dates: start: 20190325
  12. CREON [Concomitant]
     Active Substance: PANCRELIPASE AMYLASE\PANCRELIPASE LIPASE\PANCRELIPASE PROTEASE
  13. PANTOPRAZOLE [Concomitant]
     Active Substance: PANTOPRAZOLE
  14. RAMIPRIL. [Concomitant]
     Active Substance: RAMIPRIL
  15. TACHIDOL [Concomitant]
     Active Substance: ACETAMINOPHEN\CODEINE PHOSPHATE
  16. FLUOROURACIL. [Suspect]
     Active Substance: FLUOROURACIL
     Indication: ADENOCARCINOMA PANCREAS
     Route: 042
     Dates: start: 20190325, end: 20190617
  17. IRINOTECAN [Suspect]
     Active Substance: IRINOTECAN
     Indication: ADENOCARCINOMA PANCREAS
     Route: 042
     Dates: start: 20181228, end: 20190225

REACTIONS (5)
  - Diarrhoea [Recovering/Resolving]
  - Nausea [Recovering/Resolving]
  - Off label use [Unknown]
  - Lymphopenia [Recovering/Resolving]
  - Thrombocytopenia [Recovering/Resolving]

NARRATIVE: CASE EVENT DATE: 20190131
